FAERS Safety Report 12240771 (Version 1)
Quarter: 2016Q2

REPORT INFORMATION
  Report Type: Spontaneous
  Country: US (occurrence: US)
  Receive Date: 20160406
  Receipt Date: 20160406
  Transmission Date: 20160815
  Serious: No
  Sender: FDA-Public Use
  Company Number: US-TEVA-611038USA

PATIENT
  Sex: Female

DRUGS (1)
  1. SUCRALFATE. [Suspect]
     Active Substance: SUCRALFATE
     Indication: DUODENAL ULCER
     Route: 048
     Dates: start: 20151028, end: 20151117

REACTIONS (6)
  - Skin burning sensation [Unknown]
  - Dermatitis [Unknown]
  - Oral discomfort [Unknown]
  - Pain [Unknown]
  - Migraine [Unknown]
  - Abdominal discomfort [Unknown]
